FAERS Safety Report 8810220 (Version 1)
Quarter: 2012Q4

REPORT INFORMATION
  Report Type: 
  Country: US (occurrence: US)
  Receive Date: 20120926
  Receipt Date: 20120926
  Transmission Date: 20130627
  Serious: No
  Sender: FDA-Public Use
  Company Number: US-009507513-1209USA008692

PATIENT
  Sex: Male

DRUGS (2)
  1. NASONEX [Suspect]
     Dosage: two sprays each nostril or 3 squirts, qd
  2. NASALCROM [Concomitant]

REACTIONS (4)
  - Nasopharyngitis [Unknown]
  - Drug ineffective [Unknown]
  - Product quality issue [Unknown]
  - Rhinorrhoea [Unknown]
